FAERS Safety Report 21566271 (Version 1)
Quarter: 2022Q4

REPORT INFORMATION
  Report Type: Spontaneous
  Country: US (occurrence: None)
  Receive Date: 20221107
  Receipt Date: 20221107
  Transmission Date: 20230113
  Serious: Yes (Other)
  Sender: FDA-Public Use
  Company Number: None

PATIENT
  Age: 37 Year
  Sex: Female
  Weight: 119.25 kg

DRUGS (3)
  1. ACETAZOLAMIDE [Suspect]
     Active Substance: ACETAZOLAMIDE
     Indication: Idiopathic intracranial hypertension
     Dosage: 100 CAPSULE(S) ?FREQUENCY : AT BEDTIME?
     Route: 048
     Dates: start: 20221106, end: 20221107
  2. ACETAZOLAMIDE [Concomitant]
  3. CREON [Concomitant]
     Active Substance: PANCRELIPASE AMYLASE\PANCRELIPASE LIPASE\PANCRELIPASE PROTEASE

REACTIONS (7)
  - Middle insomnia [None]
  - Balance disorder [None]
  - Vertigo [None]
  - Dysstasia [None]
  - Movement disorder [None]
  - Loss of personal independence in daily activities [None]
  - Dizziness [None]

NARRATIVE: CASE EVENT DATE: 20221106
